FAERS Safety Report 17016227 (Version 1)
Quarter: 2019Q4

REPORT INFORMATION
  Report Type: Spontaneous
  Country: US (occurrence: US)
  Receive Date: 20191109
  Receipt Date: 20191109
  Transmission Date: 20200122
  Serious: No
  Sender: FDA-Public Use
  Company Number: None

PATIENT
  Age: 31 Year
  Sex: Male
  Weight: 72 kg

DRUGS (1)
  1. PROZAC [Suspect]
     Active Substance: FLUOXETINE HYDROCHLORIDE
     Indication: MAJOR DEPRESSION
     Dosage: ?          QUANTITY:6 CAPSULE(S);?
     Route: 048

REACTIONS (3)
  - Lethargy [None]
  - Suspected counterfeit product [None]
  - Product formulation issue [None]

NARRATIVE: CASE EVENT DATE: 20191109
